FAERS Safety Report 5622316-3 (Version None)
Quarter: 2008Q1

REPORT INFORMATION
  Report Type: 
  Country: None (occurrence: None)
  Receive Date: 20080114
  Receipt Date: 20070611
  Transmission Date: 20080703
  Serious: Yes (Hospitalization)
  Sender: FDA-Public Use
  Company Number: A03200703783

PATIENT
  Age: 76 Year
  Sex: Female
  Weight: 68.03 kg

DRUGS (6)
  1. PLAVIX [Suspect]
     Indication: THROMBOSIS PROPHYLAXIS
     Dosage: 75 MG QD -ORAL
     Route: 048
     Dates: start: 20070420, end: 20070521
  2. GABAPENTIN [Concomitant]
  3. METOPROLOL SUCCINATE [Concomitant]
  4. ALPRAZOLAM [Concomitant]
  5. SIMVASTATIN [Concomitant]
  6. OMEPRAZOLE [Concomitant]

REACTIONS (2)
  - ASTHENIA [None]
  - HAEMORRHAGIC STROKE [None]
